FAERS Safety Report 16688260 (Version 1)
Quarter: 2019Q3

REPORT INFORMATION
  Report Type: Spontaneous
  Country: TW (occurrence: TW)
  Receive Date: 20190809
  Receipt Date: 20190809
  Transmission Date: 20191004
  Serious: Yes (Other)
  Sender: FDA-Public Use
  Company Number: PHHY2013TW176487

PATIENT
  Sex: Female

DRUGS (3)
  1. FOLIC ACID. [Suspect]
     Active Substance: FOLIC ACID
     Indication: MYELOFIBROSIS
     Dosage: UNK
     Route: 065
  2. PREDNISOLONE. [Suspect]
     Active Substance: PREDNISOLONE
     Indication: MYELOFIBROSIS
     Dosage: UNK
     Route: 065
  3. METHYLTESTOSTERONE. [Concomitant]
     Active Substance: METHYLTESTOSTERONE
     Indication: MYELOFIBROSIS
     Dosage: 10 MG, QD OR BID
     Route: 065
     Dates: start: 20080610

REACTIONS (7)
  - Product use in unapproved indication [Unknown]
  - Malignant neoplasm progression [Unknown]
  - Blast cell count increased [Unknown]
  - Anaemia [Unknown]
  - Blood lactate dehydrogenase increased [Unknown]
  - Myelofibrosis [Unknown]
  - Platelet count decreased [Unknown]
